FAERS Safety Report 21993652 (Version 2)
Quarter: 2023Q1

REPORT INFORMATION
  Report Type: Spontaneous
  Country: US (occurrence: US)
  Receive Date: 20230215
  Receipt Date: 20230217
  Transmission Date: 20230417
  Serious: No
  Sender: FDA-Public Use
  Company Number: US-002147023-NVSC2023US033310

PATIENT
  Sex: Male

DRUGS (2)
  1. LINEZOLID [Suspect]
     Active Substance: LINEZOLID
     Indication: Mycobacterium avium complex infection
     Route: 065
  2. RIFAMYCIN [Suspect]
     Active Substance: RIFAMYCIN
     Indication: Mycobacterium avium complex infection
     Route: 065

REACTIONS (2)
  - Sputum culture positive [Unknown]
  - Drug ineffective [Unknown]
